FAERS Safety Report 24670596 (Version 1)
Quarter: 2024Q4

REPORT INFORMATION
  Report Type: Spontaneous
  Country: US (occurrence: US)
  Receive Date: 20241127
  Receipt Date: 20241127
  Transmission Date: 20250115
  Serious: No
  Sender: SUNOVION
  Company Number: US-SUMITOMO PHARMA SWITZERLAND GMBH-2024SPA005368

PATIENT

DRUGS (12)
  1. GEMTESA [Suspect]
     Active Substance: VIBEGRON
     Indication: Pollakiuria
     Dosage: 75 MG, QD (TAKEN AT NIGHT AFTER DINNER, ONCE A DAY; DOES NOT DRINK ANY WATER AT NIGHT_
     Route: 048
     Dates: start: 20241112, end: 20241117
  2. METHOTREXATE [Concomitant]
     Active Substance: METHOTREXATE
     Indication: Arthritis
     Dosage: TWO OF THESE PILLS ONCE A WEEK
     Route: 065
  3. FOLIC ACID [Concomitant]
     Active Substance: FOLIC ACID
     Dosage: ONE TABLET ONCE A DAY
     Route: 065
  4. TYLENOL [Concomitant]
     Active Substance: ACETAMINOPHEN
     Dosage: 325 MG, BID
     Route: 065
  5. FISH OIL\OMEGA-3 FATTY ACIDS [Concomitant]
     Active Substance: FISH OIL\OMEGA-3 FATTY ACIDS
     Route: 065
  6. CALCIUM [Concomitant]
     Active Substance: CALCIUM
     Dosage: 1200 MG, QD
     Route: 065
  7. MAGNESIUM [Concomitant]
     Active Substance: MAGNESIUM
     Dosage: ONCE A DAY, QD
     Route: 065
  8. ZINC PICOLINATE [Concomitant]
     Active Substance: ZINC PICOLINATE
     Dosage: 50 MG (ONCE A DAY, MAYBE EVERY OTHER DAY)
     Route: 065
  9. VITAMIN D3 [Concomitant]
     Active Substance: CHOLECALCIFEROL
     Dosage: 125 MG, ONE OF THOSE OCCASIONALLY
     Route: 065
  10. BIOTIN [Concomitant]
     Active Substance: BIOTIN
     Dosage: 5000 ?G
     Route: 065
  11. COENZYME Q10 [Concomitant]
     Active Substance: DIETARY SUPPLEMENT\UBIDECARENONE
     Dosage: 200 MG, QD
     Route: 065
  12. HERBALS\TURMERIC [Concomitant]
     Active Substance: HERBALS\TURMERIC
     Route: 065

REACTIONS (2)
  - Pollakiuria [Unknown]
  - Wrong technique in product usage process [Unknown]
